FAERS Safety Report 15706574 (Version 4)
Quarter: 2019Q4

REPORT INFORMATION
  Report Type: Spontaneous
  Country: CA (occurrence: CA)
  Receive Date: 20181210
  Receipt Date: 20191016
  Transmission Date: 20200122
  Serious: Yes (Other)
  Sender: FDA-Public Use
  Company Number: CA-BAYER-2018-223872

PATIENT
  Age: 68 Year
  Sex: Male

DRUGS (5)
  1. XOFIGO [Suspect]
     Active Substance: RADIUM RA-223 DICHLORIDE
     Dosage: 55 KBQ, ONCE
     Route: 042
     Dates: start: 20180418, end: 20180418
  2. XOFIGO [Suspect]
     Active Substance: RADIUM RA-223 DICHLORIDE
     Dosage: 55 KBQ, ONCE
     Route: 042
     Dates: start: 20180613, end: 20180613
  3. XOFIGO [Suspect]
     Active Substance: RADIUM RA-223 DICHLORIDE
     Dosage: 55 KBQ, ONCE
     Route: 042
     Dates: start: 20180711, end: 20180711
  4. XOFIGO [Suspect]
     Active Substance: RADIUM RA-223 DICHLORIDE
     Dosage: 55 KBQ, ONCE
     Route: 042
     Dates: start: 20180516, end: 20180516
  5. XOFIGO [Suspect]
     Active Substance: RADIUM RA-223 DICHLORIDE
     Dosage: 55 KBQ, ONCE
     Route: 042
     Dates: start: 20180808, end: 20180808

REACTIONS (4)
  - Hypoaesthesia [None]
  - Gait disturbance [None]
  - Neuropathy peripheral [None]
  - Pain in extremity [None]
